FAERS Safety Report 15559712 (Version 1)
Quarter: 2018Q4

REPORT INFORMATION
  Report Type: Spontaneous
  Country: US (occurrence: US)
  Receive Date: 20181023
  Receipt Date: 20181023
  Transmission Date: 20190205
  Serious: No
  Sender: FDA-Public Use
  Company Number: None

PATIENT
  Age: 70 Year
  Sex: Female
  Weight: 89.81 kg

DRUGS (3)
  1. COLCRYS [Suspect]
     Active Substance: COLCHICINE
     Indication: AMMONIA INCREASED
     Dosage: ?          QUANTITY:1 PILL;OTHER FREQUENCY:2 /DAY;?
     Route: 048
     Dates: start: 20180915, end: 20181007
  2. PRESERVISION [Concomitant]
     Active Substance: MINERALS\VITAMINS
  3. COLCRYS [Suspect]
     Active Substance: COLCHICINE
     Indication: HEPATIC CIRRHOSIS
     Dosage: ?          QUANTITY:1 PILL;OTHER FREQUENCY:2 /DAY;?
     Route: 048
     Dates: start: 20180915, end: 20181007

REACTIONS (3)
  - Loss of personal independence in daily activities [None]
  - Diarrhoea [None]
  - Vision blurred [None]
